FAERS Safety Report 9483709 (Version 1)
Quarter: 2013Q3

REPORT INFORMATION
  Report Type: Report from Study
  Country: CA (occurrence: CA)
  Receive Date: 20130828
  Receipt Date: 20130828
  Transmission Date: 20140515
  Serious: Yes (Other)
  Sender: FDA-Public Use
  Company Number: CA-JNJFOC-20130814347

PATIENT
  Age: 26 Year
  Sex: Female
  Weight: 77.3 kg

DRUGS (2)
  1. REMICADE [Suspect]
     Indication: HIDRADENITIS
     Route: 042
     Dates: start: 20120620, end: 20130823
  2. DIANE 35 [Concomitant]
     Route: 065

REACTIONS (2)
  - Precancerous cells present [Unknown]
  - Off label use [Unknown]
